FAERS Safety Report 16214649 (Version 1)
Quarter: 2019Q2

REPORT INFORMATION
  Report Type: Report from Study
  Country: US (occurrence: US)
  Receive Date: 20190418
  Receipt Date: 20190418
  Transmission Date: 20190711
  Serious: Yes (Hospitalization)
  Sender: FDA-Public Use
  Company Number: US-ACTELION-A-NJ2017-158695

PATIENT
  Age: 63 Year
  Sex: Female

DRUGS (1)
  1. OPSUMIT [Suspect]
     Active Substance: MACITENTAN
     Indication: PULMONARY ARTERIAL HYPERTENSION
     Dosage: UNK
     Route: 048
     Dates: start: 20160429

REACTIONS (9)
  - Hypoxia [Recovered/Resolved with Sequelae]
  - Asthenia [Recovered/Resolved]
  - Right ventricular failure [Recovered/Resolved with Sequelae]
  - Urinary tract infection [Recovered/Resolved]
  - Abscess soft tissue [Unknown]
  - Dyspnoea [Recovered/Resolved with Sequelae]
  - Pulmonary hypertension [Unknown]
  - Blood bilirubin increased [Unknown]
  - Arthropod bite [Unknown]

NARRATIVE: CASE EVENT DATE: 201706
